FAERS Safety Report 23906715 (Version 5)
Quarter: 2024Q3

REPORT INFORMATION
  Report Type: Report from Study
  Country: US (occurrence: US)
  Receive Date: 20240528
  Receipt Date: 20240903
  Transmission Date: 20241017
  Serious: Yes (Other)
  Sender: ABBVIE
  Company Number: US-ABBVIE-5773780

PATIENT
  Sex: Female

DRUGS (1)
  1. RINVOQ [Suspect]
     Active Substance: UPADACITINIB
     Indication: Rheumatoid arthritis
     Route: 048
     Dates: start: 20210712

REACTIONS (12)
  - Knee arthroplasty [Unknown]
  - Limb injury [Recovering/Resolving]
  - Fall [Recovering/Resolving]
  - Joint injury [Recovering/Resolving]
  - Head injury [Recovering/Resolving]
  - Wound haemorrhage [Recovering/Resolving]
  - Skin discolouration [Recovering/Resolving]
  - Peripheral swelling [Unknown]
  - Incision site complication [Unknown]
  - Pain in extremity [Unknown]
  - Lacrimation increased [Unknown]
  - Pain [Not Recovered/Not Resolved]

NARRATIVE: CASE EVENT DATE: 20240101
